FAERS Safety Report 8913794 (Version 1)
Quarter: 2012Q4

REPORT INFORMATION
  Report Type: 
  Country: GB (occurrence: GB)
  Receive Date: 20121119
  Receipt Date: 20121119
  Transmission Date: 20130627
  Serious: Yes (Other)
  Sender: FDA-Public Use
  Company Number: GB-JNJFOC-20121105014

PATIENT
  Age: 69 Year
  Weight: 75 kg

DRUGS (3)
  1. SUDAFED [Suspect]
     Route: 048
  2. SUDAFED [Suspect]
     Indication: PRODUCT USED FOR UNKNOWN INDICATION
     Route: 048
     Dates: start: 20121021, end: 20121024
  3. SUDAFED [Suspect]
     Indication: PRODUCT USED FOR UNKNOWN INDICATION
     Route: 048
     Dates: start: 20121021, end: 20121024

REACTIONS (3)
  - Dysuria [Recovered/Resolved]
  - Emotional distress [Recovered/Resolved]
  - Dysuria [Recovered/Resolved]
